FAERS Safety Report 8785752 (Version 1)
Quarter: 2012Q4

REPORT INFORMATION
  Report Type: 
  Country: US (occurrence: US)
  Receive Date: 20120914
  Receipt Date: 20120914
  Transmission Date: 20130627
  Serious: No
  Sender: FDA-Public Use
  Company Number: US-BAYER-2012-095682

PATIENT
  Age: 47 Year
  Sex: Female
  Weight: 28.12 kg

DRUGS (5)
  1. BETASERON [Suspect]
     Indication: PRODUCT USED FOR UNKNOWN INDICATION
     Dosage: 0.3 mg, QOD
     Route: 058
  2. TOPAMAX [Concomitant]
     Dosage: 100 mg, UNK
  3. OXYCODONE [Concomitant]
     Dosage: 5 mg, UNK
  4. PROMETHAZINE [Concomitant]
     Dosage: 12.5 mg, UNK
  5. TUMS [CALCIUM CARBONATE,MAGNESIUM CARBONATE,MAGNESIUM TRISILICATE] [Concomitant]
     Dosage: 500 mg, UNK

REACTIONS (3)
  - Nasopharyngitis [Unknown]
  - Dyspepsia [Unknown]
  - Nausea [Unknown]
